FAERS Safety Report 8417934-3 (Version None)
Quarter: 2012Q2

REPORT INFORMATION
  Report Type: 
  Country: None (occurrence: None)
  Receive Date: 20120601
  Receipt Date: 20120601
  Transmission Date: 20120825
  Serious: Yes (Life-Threatening)
  Sender: FDA-Public Use
  Company Number: None

PATIENT
  Sex: Female
  Weight: 58.9676 kg

DRUGS (1)
  1. ULTRAM [Suspect]
     Indication: PAIN
     Dosage: ONE EVERY 6 HRS ON DEMAND
     Dates: start: 20120420

REACTIONS (5)
  - BURNING SENSATION [None]
  - URTICARIA [None]
  - PRURITUS [None]
  - BLISTER [None]
  - RASH GENERALISED [None]
